FAERS Safety Report 26201791 (Version 1)
Quarter: 2025Q4

REPORT INFORMATION
  Report Type: Report from Study
  Country: CA (occurrence: CA)
  Receive Date: 20251226
  Receipt Date: 20251226
  Transmission Date: 20260118
  Serious: Yes (Other)
  Sender: CELLTRION
  Company Number: CA-CELLTRION INC.-2025CA040668

PATIENT

DRUGS (3)
  1. INFLIXIMAB-DYYB [Suspect]
     Active Substance: INFLIXIMAB-DYYB
     Indication: Crohn^s disease
     Dosage: 500 MG, WEEK 0, 2, AND 6 WEEKS (LOADING)
     Route: 042
     Dates: start: 20251103
  2. INFLIXIMAB-DYYB [Suspect]
     Active Substance: INFLIXIMAB-DYYB
     Dosage: 500 MG (WEEK 2) LOADING DOSE
     Route: 042
     Dates: start: 20251119
  3. INFLIXIMAB-DYYB [Suspect]
     Active Substance: INFLIXIMAB-DYYB
     Dosage: 500 MG (WEEK 6) LOADING DOSE
     Route: 042
     Dates: start: 20251217

REACTIONS (5)
  - Pain in extremity [Not Recovered/Not Resolved]
  - Headache [Recovered/Resolved]
  - Harvey-Bradshaw index increased [Unknown]
  - Arthralgia [Unknown]
  - Underdose [Unknown]

NARRATIVE: CASE EVENT DATE: 20250101
